FAERS Safety Report 8967983 (Version 3)
Quarter: 2014Q2

REPORT INFORMATION
  Report Type: Report from Study
  Country: SE (occurrence: SE)
  Receive Date: 20121217
  Receipt Date: 20131018
  Transmission Date: 20141212
  Serious: Yes (Hospitalization, Other)
  Sender: FDA-Public Use
  Company Number: SE-PFIZER INC-2012312797

PATIENT
  Age: 54 Year
  Sex: Female
  Weight: 88 kg

DRUGS (17)
  1. SOLU-MEDROL [Suspect]
     Indication: PROPHYLAXIS AGAINST TRANSPLANT REJECTION
     Dosage: 500 MG, SINGLE INFUSION
     Route: 042
     Dates: start: 20031115, end: 20031115
  2. PREDNISOLONE [Suspect]
     Indication: PROPHYLAXIS AGAINST TRANSPLANT REJECTION
     Dosage: 5 MG, 1D, TAPERED ACCORDING TO HOSPITAL ROUTINE
     Route: 048
     Dates: start: 20031116
  3. PREDNISOLONE [Suspect]
     Indication: PROPHYLAXIS AGAINST TRANSPLANT REJECTION
     Dosage: 100 MG, SINGLE INFUSION
     Route: 042
     Dates: start: 20031115, end: 20031115
  4. DACLIZUMAB [Suspect]
     Indication: PROPHYLAXIS AGAINST TRANSPLANT REJECTION
     Dosage: 180 MG, SINGLE INFUSION
     Route: 042
     Dates: start: 20031115, end: 20031115
  5. DACLIZUMAB [Suspect]
     Dosage: 90 MG, CYCLIC EVERY TWO WEEKS
     Route: 042
     Dates: start: 20031127, end: 20040108
  6. MYCOPHENOLATE MOFETIL [Suspect]
     Indication: PROPHYLAXIS AGAINST TRANSPLANT REJECTION
     Dosage: 1 G, 2X/DAY
     Route: 048
     Dates: start: 20031115, end: 20040512
  7. MYCOPHENOLATE MOFETIL [Suspect]
     Dosage: 750 MG, 2X/DAY
     Route: 048
     Dates: start: 20040513, end: 20040727
  8. MYCOPHENOLATE MOFETIL [Suspect]
     Dosage: 500 MG, 2X/DAY
     Route: 048
     Dates: start: 20040728, end: 20040812
  9. MYCOPHENOLATE MOFETIL [Suspect]
     Dosage: 250 MG, 2X/DAY
     Route: 048
     Dates: start: 20040813, end: 20050815
  10. TACROLIMUS [Suspect]
     Indication: PROPHYLAXIS AGAINST TRANSPLANT REJECTION
     Dosage: 2 MG, 2X/DAY
     Route: 048
     Dates: start: 20031115, end: 20040215
  11. TACROLIMUS [Suspect]
     Dosage: 1.75 MG, 2X/DAY
     Route: 048
     Dates: start: 20040216, end: 20060516
  12. TACROLIMUS [Suspect]
     Indication: PROPHYLAXIS AGAINST TRANSPLANT REJECTION
     Dosage: 1.25 MG, 2X/DAY
     Route: 048
     Dates: start: 20060517
  13. PRECORTALON AQUOSUM [Suspect]
     Indication: PROPHYLAXIS AGAINST TRANSPLANT REJECTION
     Dosage: 100 MG, SINGLE INFUSION
     Route: 042
     Dates: start: 20031115, end: 20031115
  14. VALGANCICLOVIR HYDROCHLORIDE [Concomitant]
     Dosage: UNK
     Route: 048
  15. LANSOPRAZOLE [Concomitant]
     Dosage: 30 MG, 1X/DAY
     Route: 048
     Dates: start: 20031116, end: 20040727
  16. LANSOPRAZOLE [Concomitant]
     Dosage: 15 MG, 1X/DAY
     Route: 048
     Dates: start: 20040728
  17. NYSTATIN [Concomitant]
     Dosage: 1 ML, 4X/DAY
     Route: 048
     Dates: start: 20031116, end: 20040706

REACTIONS (2)
  - Diabetes mellitus [Unknown]
  - Lymphocele [Recovered/Resolved]
